FAERS Safety Report 21730292 (Version 4)
Quarter: 2024Q4

REPORT INFORMATION
  Report Type: Spontaneous
  Country: DE (occurrence: DE)
  Receive Date: 20221214
  Receipt Date: 20241127
  Transmission Date: 20250115
  Serious: Yes (Other)
  Sender: MSN LABORATORIES PRIVATE LIMITED
  Company Number: DE-BoehringerIngelheim-2022-BI-203673

PATIENT

DRUGS (16)
  1. ATORVASTATIN [Suspect]
     Active Substance: ATORVASTATIN
     Indication: Product used for unknown indication
     Route: 065
  2. CHLORTHALIDONE [Suspect]
     Active Substance: CHLORTHALIDONE
     Indication: Product used for unknown indication
     Route: 065
  3. CARVEDILOL [Suspect]
     Active Substance: CARVEDILOL
     Indication: Product used for unknown indication
     Dosage: 0.5 -0-0.5?HALF TABLET IN THE MORNING AND A HALF TABLET IN THE EVENING
     Route: 065
  4. OLANZAPINE [Suspect]
     Active Substance: OLANZAPINE
     Indication: Product used for unknown indication
     Dosage: 5 MG, ONCE A DAY (QD)
     Route: 065
  5. NITRENDIPINE [Suspect]
     Active Substance: NITRENDIPINE
     Indication: Product used for unknown indication
     Dosage: AS NECESSARY (BLOOD PRESSURE OVER 170 MMHG)
     Route: 065
  6. ARGININE\FOLIC ACID [Suspect]
     Active Substance: ARGININE\FOLIC ACID
     Indication: Product used for unknown indication
     Route: 065
  7. APIXABAN [Suspect]
     Active Substance: APIXABAN
     Indication: Product used for unknown indication
     Dosage: 0-1-0
     Route: 065
  8. MOXONIDINE [Suspect]
     Active Substance: MOXONIDINE
     Indication: Product used for unknown indication
     Dosage: 0.2 MG, ONCE A DAY (QD)
     Route: 065
  9. VITAMIN C [Suspect]
     Active Substance: ASCORBIC ACID
     Indication: Product used for unknown indication
     Route: 065
  10. TAMSULOSIN HYDROCHLORIDE [Suspect]
     Active Substance: TAMSULOSIN HYDROCHLORIDE
     Indication: Product used for unknown indication
     Route: 065
  11. VITAMIN D3 [Suspect]
     Active Substance: CHOLECALCIFEROL
     Indication: Product used for unknown indication
     Route: 065
  12. LOSARTAN POTASSIUM [Suspect]
     Active Substance: LOSARTAN POTASSIUM
     Indication: Product used for unknown indication
     Dosage: 0.5 -0-0.5A HALF TABLET IN THE MORNING AND A HALF TABLET IN THE EVENING
     Route: 065
  13. LOSARTAN POTASSIUM [Suspect]
     Active Substance: LOSARTAN POTASSIUM
     Dosage: 0.5-0-0.5 A HALF TABLET IN THE MORNING AND A HALF TABLET IN THE EVENING
     Route: 065
  14. AMINO ACIDS\VITAMINS [Suspect]
     Active Substance: AMINO ACIDS\VITAMINS
     Indication: Product used for unknown indication
     Dosage: ONCE DAILY
     Route: 065
  15. TELMISARTAN [Suspect]
     Active Substance: TELMISARTAN
     Indication: Product used for unknown indication
     Dosage: 40 MG, BID  (0.5 -0-0.5 A HALF TABLET IN THE MORNING AND A HALF TABLET IN THE EVENING)
     Route: 065
  16. TELMISARTAN [Suspect]
     Active Substance: TELMISARTAN
     Dosage: 80 MG, ONCE A DAY (QD)
     Route: 065

REACTIONS (3)
  - Hemihypoaesthesia [Not Recovered/Not Resolved]
  - Hemiparaesthesia [Not Recovered/Not Resolved]
  - Wrong technique in product usage process [Unknown]
